FAERS Safety Report 5141380-1 (Version None)
Quarter: 2006Q4

REPORT INFORMATION
  Report Type: 
  Country: None (occurrence: None)
  Receive Date: 20061101
  Receipt Date: 20061025
  Transmission Date: 20070319
  Serious: Yes (Other)
  Sender: FDA-Public Use
  Company Number: US-GLAXOSMITHKLINE-A0624839A

PATIENT
  Age: 60 Year
  Sex: Female

DRUGS (7)
  1. SEREVENT [Suspect]
     Indication: CHRONIC OBSTRUCTIVE PULMONARY DISEASE
     Dosage: 2PUFF TWICE PER DAY
     Route: 055
  2. PULMICORT [Concomitant]
  3. ALBUTEROL [Concomitant]
  4. NEBULIZER [Concomitant]
     Indication: DRUG USE FOR UNKNOWN INDICATION
     Route: 055
  5. INHALER [Concomitant]
     Indication: DRUG USE FOR UNKNOWN INDICATION
     Route: 065
  6. XOPENEX [Concomitant]
     Indication: DRUG USE FOR UNKNOWN INDICATION
     Route: 055
  7. OXYGEN [Concomitant]
     Indication: DRUG USE FOR UNKNOWN INDICATION
     Route: 055

REACTIONS (3)
  - DYSPNOEA [None]
  - LOSS OF CONSCIOUSNESS [None]
  - PULMONARY FUNCTION TEST DECREASED [None]
